FAERS Safety Report 24899060 (Version 1)
Quarter: 2025Q1

REPORT INFORMATION
  Report Type: Spontaneous
  Country: TW (occurrence: TW)
  Receive Date: 20250129
  Receipt Date: 20250129
  Transmission Date: 20250409
  Serious: Yes (Other)
  Sender: ACCORD
  Company Number: TW-MLMSERVICE-20250113-PI347659-00194-1

PATIENT
  Age: 56 Year
  Sex: Female

DRUGS (2)
  1. LETROZOLE [Suspect]
     Active Substance: LETROZOLE
     Indication: Invasive ductal breast carcinoma
     Dates: start: 2022, end: 2022
  2. LETROZOLE [Suspect]
     Active Substance: LETROZOLE
     Indication: Metastases to lymph nodes
     Dates: start: 2022, end: 2022

REACTIONS (2)
  - Spinal compression fracture [Unknown]
  - Osteoporosis [Unknown]
